FAERS Safety Report 9383604 (Version 2)
Quarter: 2013Q4

REPORT INFORMATION
  Report Type: Spontaneous
  Country: US (occurrence: US)
  Receive Date: 20130704
  Receipt Date: 20131127
  Transmission Date: 20140711
  Serious: Yes (Other)
  Sender: FDA-Public Use
  Company Number: US-PFIZER INC-2013194222

PATIENT
  Age: 59 Year
  Sex: Male

DRUGS (6)
  1. OMEPRAZOLE [Suspect]
     Indication: OESOPHAGITIS
     Dosage: 20 MG, DAILY
     Route: 065
  2. ATORVASTATIN CALCIUM [Interacting]
     Dosage: 20 MG, DAILY
     Route: 065
  3. GEMFIBROZIL [Interacting]
     Dosage: 600 MG, 2X/DAY
     Route: 065
  4. AMLODIPINE [Concomitant]
  5. ACETYLSALICYLIC ACID [Concomitant]
  6. METOPROLOL [Concomitant]

REACTIONS (2)
  - Drug interaction [Recovered/Resolved]
  - Polymyositis [Recovered/Resolved]
